FAERS Safety Report 8089651-3 (Version None)
Quarter: 2012Q1

REPORT INFORMATION
  Report Type: 
  Country: None (occurrence: None)
  Receive Date: 20120128
  Receipt Date: 20110722
  Transmission Date: 20120608
  Serious: No
  Sender: FDA-Public Use
  Company Number: US-ABBOTT-11P-163-0729785-00

PATIENT
  Sex: Male

DRUGS (5)
  1. BIAXIN [Suspect]
     Indication: PYREXIA
  2. PRILOSEC [Concomitant]
     Indication: GASTROOESOPHAGEAL REFLUX DISEASE
  3. BIAXIN [Suspect]
     Indication: RESPIRATORY TRACT INFECTION
     Route: 048
  4. HUMIRA [Suspect]
     Indication: PSORIASIS
     Dates: start: 20110309
  5. ZYRTEC [Concomitant]
     Indication: PRODUCT USED FOR UNKNOWN INDICATION

REACTIONS (10)
  - EAR PAIN [None]
  - RESPIRATORY TRACT INFECTION [None]
  - OEDEMA PERIPHERAL [None]
  - COUGH [None]
  - ARTHRALGIA [None]
  - JOINT SWELLING [None]
  - PAIN [None]
  - PYREXIA [None]
  - OROPHARYNGEAL PAIN [None]
  - CHEST PAIN [None]
